FAERS Safety Report 7051373-5 (Version None)
Quarter: 2010Q4

REPORT INFORMATION
  Report Type: 
  Country: None (occurrence: None)
  Receive Date: 20101019
  Receipt Date: 20101015
  Transmission Date: 20110411
  Serious: No
  Sender: FDA-Public Use
  Company Number: US-B.I. PHARMACEUTICALS,INC./RIDGEFIELD-2010-BP-11659BP

PATIENT
  Sex: Female

DRUGS (3)
  1. ZANTAC [Suspect]
     Indication: DYSPEPSIA
     Dosage: 300 MG
     Route: 048
     Dates: start: 20101001, end: 20101015
  2. SYNTHROID [Concomitant]
     Indication: HYPOTHYROIDISM
     Dosage: 150 MCG
     Route: 048
  3. WELLBUTRIN [Concomitant]
     Indication: ANXIETY
     Dosage: 300 MG
     Route: 048

REACTIONS (1)
  - DRUG INEFFECTIVE [None]
